FAERS Safety Report 12930805 (Version 1)
Quarter: 2016Q4

REPORT INFORMATION
  Report Type: Spontaneous
  Country: US (occurrence: US)
  Receive Date: 20161110
  Receipt Date: 20161110
  Transmission Date: 20170207
  Serious: Yes (Other)
  Sender: FDA-Public Use
  Company Number: US-TEVA-711512USA

PATIENT
  Sex: Female
  Weight: 70.37 kg

DRUGS (3)
  1. CELECOXIB. [Suspect]
     Active Substance: CELECOXIB
     Route: 065
     Dates: start: 2016, end: 2016
  2. CELECOXIB. [Suspect]
     Active Substance: CELECOXIB
     Indication: ARTHRITIS
     Route: 065
     Dates: end: 201512
  3. CELECOXIB. [Suspect]
     Active Substance: CELECOXIB
     Route: 065
     Dates: start: 2016

REACTIONS (4)
  - Abdominal distension [Unknown]
  - Peripheral swelling [Unknown]
  - Arthrodesis [Unknown]
  - Weight increased [Unknown]

NARRATIVE: CASE EVENT DATE: 2016
